FAERS Safety Report 14344204 (Version 1)
Quarter: 2018Q1

REPORT INFORMATION
  Report Type: Spontaneous
  Country: US (occurrence: US)
  Receive Date: 20180102
  Receipt Date: 20180102
  Transmission Date: 20180509
  Serious: No
  Sender: FDA-Public Use
  Company Number: US-GILEAD-2017-0312880

PATIENT
  Age: 25 Year
  Sex: Female
  Weight: 62.59 kg

DRUGS (5)
  1. EPCLUSA [Suspect]
     Active Substance: SOFOSBUVIR\VELPATASVIR
     Indication: HEPATITIS C
     Dosage: 1 DF, UNK
     Route: 048
     Dates: start: 20170410
  2. ZOFRAN [Concomitant]
     Active Substance: ONDANSETRON HYDROCHLORIDE
     Indication: NAUSEA
     Dosage: UNK
     Dates: start: 20170510
  3. SEROQUEL [Concomitant]
     Active Substance: QUETIAPINE FUMARATE
  4. NEURONTIN [Concomitant]
     Active Substance: GABAPENTIN
  5. SUBOXONE [Concomitant]
     Active Substance: BUPRENORPHINE HYDROCHLORIDE\NALOXONE HYDROCHLORIDE

REACTIONS (1)
  - Maternal exposure during pregnancy [Not Recovered/Not Resolved]
